FAERS Safety Report 9703026 (Version 1)
Quarter: 2013Q4

REPORT INFORMATION
  Report Type: Spontaneous
  Country: PH (occurrence: PH)
  Receive Date: 20131122
  Receipt Date: 20131122
  Transmission Date: 20140711
  Serious: Yes (Death)
  Sender: FDA-Public Use
  Company Number: PH-009507513-1311PHL007586

PATIENT
  Age: 43 Year
  Sex: Female

DRUGS (1)
  1. JANUMET [Suspect]
     Dosage: 500/50 MG, BID, 1 TABLET
     Route: 048
     Dates: start: 20130308, end: 2013

REACTIONS (2)
  - Cardiac disorder [Fatal]
  - Blood glucose decreased [Unknown]
